FAERS Safety Report 6400956-1 (Version None)
Quarter: 2009Q4

REPORT INFORMATION
  Report Type: 
  Country: None (occurrence: None)
  Receive Date: 20091015
  Receipt Date: 20071107
  Transmission Date: 20100525
  Serious: Yes (Disabling)
  Sender: FDA-Public Use
  Company Number: US-ASTRAZENECA-2006UW08308

PATIENT
  Sex: Female
  Weight: 72.1 kg

DRUGS (9)
  1. SEROQUEL [Suspect]
     Dosage: STRENGTH: 100 MG, 300 MG. DOSE: 200 MG TO 300 MG DAILY
     Route: 048
     Dates: start: 19990701
  2. ALPRAZOLAM [Concomitant]
     Dosage: STRENGTH: 0.5 MG, 1 MG. DOSE: 1.5 MG DAILY
     Dates: start: 19990706
  3. LITHIUM CARBONATE [Concomitant]
     Dosage: STRENGTH: 300 MG. DOSE: 900 MG TO 1500 MG DAILY
     Route: 048
     Dates: start: 19990701
  4. EFFEXOR XR [Concomitant]
     Dosage: STRENGTH: 75 MG, 150 MG. DOSE: 150 MG TO 225 MG DAILY
     Route: 048
     Dates: start: 19990706
  5. SYNTHROID [Concomitant]
     Dosage: STRENGTH: 0.1 MG, 0.15 MG. DOSE: 0.1 MG TO 0.15 MG DAILY
     Route: 048
     Dates: start: 20050520
  6. CLONAZEPAM [Concomitant]
     Route: 048
     Dates: start: 20050516
  7. GLUCOPHAGE [Concomitant]
     Dates: start: 20050719
  8. DIOVAN [Concomitant]
     Dates: start: 20050719
  9. ZELNORM [Concomitant]
     Indication: IRRITABLE BOWEL SYNDROME
     Route: 048
     Dates: start: 20050516

REACTIONS (1)
  - ILL-DEFINED DISORDER [None]
